FAERS Safety Report 10431163 (Version 5)
Quarter: 2015Q1

REPORT INFORMATION
  Report Type: Spontaneous
  Country: US (occurrence: US)
  Receive Date: 20140904
  Receipt Date: 20150212
  Transmission Date: 20150720
  Serious: Yes (Hospitalization, Other)
  Sender: FDA-Public Use
  Company Number: US-BAYER-2014-129630

PATIENT
  Age: 23 Year
  Sex: Female
  Weight: 112 kg

DRUGS (7)
  1. RANITIDINE [Concomitant]
     Active Substance: RANITIDINE\RANITIDINE HYDROCHLORIDE
  2. VICODIN [Concomitant]
     Active Substance: ACETAMINOPHEN\HYDROCODONE BITARTRATE
  3. BENTYL [Concomitant]
     Active Substance: DICYCLOMINE HYDROCHLORIDE
  4. PHENERGAN [PROMETHAZINE] [Concomitant]
     Route: 030
  5. MIRENA [Suspect]
     Active Substance: LEVONORGESTREL
     Dosage: 20 MCG/24HR, CONT
     Route: 015
     Dates: start: 201101, end: 201309
  6. PHENTERMINE [Concomitant]
     Active Substance: PHENTERMINE
     Dosage: 37.5 MG, QD
     Route: 048
  7. MIRENA [Suspect]
     Active Substance: LEVONORGESTREL
     Dosage: 20 MCG/24HR, CONT
     Route: 015
     Dates: start: 20130909, end: 20140204

REACTIONS (8)
  - Device issue [None]
  - Pain [None]
  - Cholelithiasis [None]
  - Injury [None]
  - Device dislocation [None]
  - Renal impairment [None]
  - Malaise [None]
  - Medical device discomfort [None]

NARRATIVE: CASE EVENT DATE: 201101
